FAERS Safety Report 14526690 (Version 5)
Quarter: 2018Q2

REPORT INFORMATION
  Report Type: Spontaneous
  Country: ES (occurrence: ES)
  Receive Date: 20180213
  Receipt Date: 20180427
  Transmission Date: 20180711
  Serious: Yes (Life-Threatening, Hospitalization, Other)
  Sender: FDA-Public Use
  Company Number: PHHY2018ES022276

PATIENT
  Age: 42 Year
  Sex: Male

DRUGS (1)
  1. COSENTYX [Suspect]
     Active Substance: SECUKINUMAB
     Indication: ANKYLOSING SPONDYLITIS
     Dosage: 150 MG, QW
     Route: 058
     Dates: start: 20180111, end: 20180125

REACTIONS (11)
  - Sepsis [Unknown]
  - Pyrexia [Unknown]
  - Haemoglobin decreased [Unknown]
  - Respiratory failure [Not Recovered/Not Resolved]
  - Renal failure [Unknown]
  - Influenza [Recovered/Resolved with Sequelae]
  - Nosocomial infection [Recovered/Resolved]
  - Dehydration [Unknown]
  - Dyspnoea [Unknown]
  - Multiple organ dysfunction syndrome [Recovered/Resolved with Sequelae]
  - Cough [Unknown]

NARRATIVE: CASE EVENT DATE: 20180129
